FAERS Safety Report 7996407-6 (Version None)
Quarter: 2011Q4

REPORT INFORMATION
  Report Type: 
  Country: None (occurrence: None)
  Receive Date: 20111220
  Receipt Date: 20111213
  Transmission Date: 20120403
  Serious: Yes (Other)
  Sender: FDA-Public Use
  Company Number: PHHY2011IT108598

PATIENT
  Sex: Female

DRUGS (5)
  1. CANRENONE [Concomitant]
  2. METFORMIN HCL [Concomitant]
  3. LOSARTAN POTASSIUM [Suspect]
     Dosage: 50 MG, DAILY DOSE
     Route: 048
     Dates: start: 20100826, end: 20110825
  4. FUROSEMIDE [Concomitant]
  5. COUMADIN [Concomitant]
     Dosage: 5 MG, UNK

REACTIONS (2)
  - BLOOD POTASSIUM DECREASED [None]
  - RENAL FAILURE [None]
